FAERS Safety Report 5324737-5 (Version None)
Quarter: 2007Q2

REPORT INFORMATION
  Report Type: 
  Country: None (occurrence: None)
  Receive Date: 20070220
  Receipt Date: 20061220
  Transmission Date: 20071010
  Serious: No
  Sender: FDA-Public Use
  Company Number: WAES 0612USA03344

PATIENT
  Age: 73 Year
  Sex: Female

DRUGS (6)
  1. JANUVIA [Suspect]
     Indication: HYPERGLYCAEMIA
     Dosage: 25 MG/DAILY/PO
     Route: 048
     Dates: start: 20061211
  2. AMARYL [Concomitant]
  3. AVAPRO [Concomitant]
  4. DYAZIDE [Concomitant]
  5. LEXAPRO [Concomitant]
  6. PREVACID [Concomitant]

REACTIONS (1)
  - DIARRHOEA [None]
